FAERS Safety Report 23101791 (Version 1)
Quarter: 2023Q4

REPORT INFORMATION
  Report Type: Report from Study
  Country: DE (occurrence: DE)
  Receive Date: 20231025
  Receipt Date: 20231025
  Transmission Date: 20240110
  Serious: Yes (Hospitalization)
  Sender: FDA-Public Use
  Company Number: DE-002147023-NVSC2023DE127447

PATIENT
  Sex: Female

DRUGS (4)
  1. SIMPONI [Suspect]
     Active Substance: GOLIMUMAB
     Indication: Product used for unknown indication
     Dosage: 50 MG
     Route: 065
     Dates: start: 201803, end: 202204
  2. SIMPONI [Suspect]
     Active Substance: GOLIMUMAB
     Dosage: 50 MG
     Route: 065
     Dates: start: 201609, end: 201706
  3. SIMPONI [Suspect]
     Active Substance: GOLIMUMAB
     Dosage: 50 MG
     Route: 065
     Dates: start: 201709, end: 201802
  4. ETANERCEPT [Suspect]
     Active Substance: ETANERCEPT
     Indication: Rheumatoid arthritis
     Dosage: 50 MG (EVERY 7 DAYS)
     Route: 065
     Dates: start: 202205

REACTIONS (7)
  - Arthritis [Recovered/Resolved]
  - Chondropathy [Recovered/Resolved]
  - Arthralgia [Recovered/Resolved]
  - Spinal osteoarthritis [Recovered/Resolved]
  - Dyspepsia [Unknown]
  - Influenza like illness [Recovered/Resolved]
  - Oral herpes [Recovered/Resolved]

NARRATIVE: CASE EVENT DATE: 20230105
